FAERS Safety Report 23519028 (Version 1)
Quarter: 2024Q1

REPORT INFORMATION
  Report Type: Spontaneous
  Country: US (occurrence: US)
  Receive Date: 20240213
  Receipt Date: 20240213
  Transmission Date: 20240410
  Serious: No
  Sender: FDA-Public Use
  Company Number: US-UNITED THERAPEUTICS-UNT-2023-036703

PATIENT
  Sex: Female

DRUGS (2)
  1. TYVASO [Suspect]
     Active Substance: TREPROSTINIL
     Indication: Pulmonary arterial hypertension
     Dosage: 54 ?G, QID
  2. TYVASO [Suspect]
     Active Substance: TREPROSTINIL
     Dosage: UNK
     Dates: start: 202103

REACTIONS (12)
  - Respiratory tract congestion [Unknown]
  - Dyspnoea [Unknown]
  - Cough [Unknown]
  - Device use error [Unknown]
  - Device malfunction [Unknown]
  - Device information output issue [Unknown]
  - Device information output issue [Unknown]
  - Device information output issue [Unknown]
  - Device information output issue [Unknown]
  - Device information output issue [Unknown]
  - Device malfunction [Unknown]
  - Device malfunction [Unknown]
